FAERS Safety Report 21855111 (Version 4)
Quarter: 2023Q4

REPORT INFORMATION
  Report Type: Spontaneous
  Country: US (occurrence: US)
  Receive Date: 20230112
  Receipt Date: 20231106
  Transmission Date: 20240109
  Serious: No
  Sender: FDA-Public Use
  Company Number: US-PFIZER INC-PV202300004935

PATIENT
  Age: 64 Year
  Sex: Female

DRUGS (1)
  1. IBRANCE [Suspect]
     Active Substance: PALBOCICLIB
     Dosage: TAKE ONE TABLET (75 MG) DAILY FOR 3 WEEKS ON FALLOWED BY 2 WEEK OFF IN A 5-WEEK CYCLE

REACTIONS (4)
  - Neutrophil count decreased [Unknown]
  - Dental implantation [Unknown]
  - Off label use [Unknown]
  - Product use issue [Unknown]
